FAERS Safety Report 16046883 (Version 2)
Quarter: 2019Q2

REPORT INFORMATION
  Report Type: Spontaneous
  Country: US (occurrence: US)
  Receive Date: 20190307
  Receipt Date: 20190425
  Transmission Date: 20190711
  Serious: No
  Sender: FDA-Public Use
  Company Number: US-PFIZER INC-2019035158

PATIENT
  Age: 71 Year
  Sex: Male
  Weight: 113.38 kg

DRUGS (12)
  1. IBUPROFEN. [Concomitant]
     Active Substance: IBUPROFEN
     Dosage: 0.5 DF, AS NEEDED [1/2 TABLET EVERY 8 HOURS PRN]
  2. GLUCOPHAGE XR [Concomitant]
     Active Substance: METFORMIN HYDROCHLORIDE
     Dosage: 1000 MG, TWICE A DAY
  3. LOSARTAN. [Concomitant]
     Active Substance: LOSARTAN
     Dosage: 1.5 DF, DAILY [HALF TABLET IN THE MORNING AND 1 TABLET IN THE EVENING]
  4. ASPIRINE 325 MG [Concomitant]
     Dosage: 325 MG, 1X/DAY, EVERY MORNING
  5. HYDROCHLOROTHIAZIDE. [Concomitant]
     Active Substance: HYDROCHLOROTHIAZIDE
     Dosage: 12.5 MG, 1X/DAY
  6. LYRICA [Suspect]
     Active Substance: PREGABALIN
     Indication: DIABETIC NEUROPATHY
     Dosage: 50 MG, TWICE A DAY
     Route: 048
  7. LIPITOR [Concomitant]
     Active Substance: ATORVASTATIN CALCIUM
     Dosage: 20 MG, 1X/DAY, AT BEDTIME
  8. OMEGA 3 FISH OILS [Concomitant]
     Active Substance: OMEGA-3 FATTY ACIDS
     Dosage: 1 DF, TWICE A DAY [684 MG-1,200 MG]
  9. MAGNESIUM OXIDE. [Concomitant]
     Active Substance: MAGNESIUM OXIDE
     Dosage: 400 MG, ONCE A DAY
  10. AMANTADINE. [Concomitant]
     Active Substance: AMANTADINE HYDROCHLORIDE
     Dosage: 100 MG, 3X/DAY [EVERY 8 HOURS]
  11. OMEPRAZOLE. [Concomitant]
     Active Substance: OMEPRAZOLE
     Dosage: 20 MG, TWICE A DAY
  12. COREG [Concomitant]
     Active Substance: CARVEDILOL
     Dosage: 25 MG, TWICE A DAY

REACTIONS (3)
  - Pain in extremity [Unknown]
  - Weight decreased [Unknown]
  - Axillary pain [Unknown]
